FAERS Safety Report 6477770-4 (Version None)
Quarter: 2009Q4

REPORT INFORMATION
  Report Type: 
  Country: None (occurrence: None)
  Receive Date: 20091207
  Receipt Date: 20091125
  Transmission Date: 20100525
  Serious: Yes (Life-Threatening, Other)
  Sender: FDA-Public Use
  Company Number: US-ELI_LILLY_AND_COMPANY-US200912000283

PATIENT
  Age: 64 Year
  Sex: Male

DRUGS (1)
  1. EFFIENT [Suspect]
     Indication: CORONARY ARTERY OCCLUSION
     Dosage: 60 MG, UNK

REACTIONS (2)
  - AORTIC DISSECTION [None]
  - OPERATIVE HAEMORRHAGE [None]
